FAERS Safety Report 7492029-4 (Version None)
Quarter: 2011Q2

REPORT INFORMATION
  Report Type: 
  Country: None (occurrence: None)
  Receive Date: 20110519
  Receipt Date: 20110510
  Transmission Date: 20111010
  Serious: Yes (Hospitalization)
  Sender: FDA-Public Use
  Company Number: CH-ASTRAZENECA-2011SE27511

PATIENT
  Age: 0 Year
  Sex: Female
  Weight: 3.3 kg

DRUGS (8)
  1. RISPERDAL [Suspect]
     Indication: PSYCHOTIC DISORDER
     Route: 064
  2. MESTINON [Suspect]
     Indication: MYASTHENIA GRAVIS
     Route: 064
  3. AZATHIOPRINE [Suspect]
     Route: 064
  4. CALCIMAGON D3 [Concomitant]
     Route: 064
  5. NEXIUM [Suspect]
     Route: 064
  6. PREDNISONE [Suspect]
     Route: 064
  7. ACTONEL [Suspect]
     Route: 064
  8. PREDNISONE [Suspect]
     Route: 064

REACTIONS (3)
  - HYPOTONIA NEONATAL [None]
  - MATERNAL DRUGS AFFECTING FOETUS [None]
  - FEEDING DISORDER NEONATAL [None]
